FAERS Safety Report 8549901-3 (Version None)
Quarter: 2012Q3

REPORT INFORMATION
  Report Type: 
  Country: None (occurrence: None)
  Receive Date: 20120730
  Receipt Date: 20120330
  Transmission Date: 20120928
  Serious: No
  Sender: FDA-Public Use
  Company Number: US-GLAXOSMITHKLINE-A0971633A

PATIENT
  Sex: Female

DRUGS (2)
  1. IMITREX [Suspect]
     Route: 045
     Dates: start: 20100101
  2. IMITREX [Suspect]
     Indication: MIGRAINE
     Route: 048
     Dates: start: 20080101

REACTIONS (1)
  - DRUG INEFFECTIVE [None]
